FAERS Safety Report 6492029-7 (Version None)
Quarter: 2009Q4

REPORT INFORMATION
  Report Type: 
  Country: None (occurrence: None)
  Receive Date: 20091125
  Receipt Date: 20090310
  Transmission Date: 20100525
  Serious: Yes (Other)
  Sender: FDA-Public Use
  Company Number: 2009BH004193

PATIENT
  Age: 26 Month
  Sex: Male

DRUGS (8)
  1. DIANEAL [Suspect]
     Indication: PERITONEAL DIALYSIS
     Dosage: 5 L ; EVERY DAY ; IP
     Route: 033
     Dates: start: 20080601
  2. EPOGEN [Concomitant]
  3. AMILORIDE HYDROCHLORIDE [Concomitant]
  4. CALCITRIOL [Concomitant]
  5. NIFEREX [Concomitant]
  6. MEDI-LYTE [Concomitant]
  7. TRIPELENNAMINE [Concomitant]
  8. NEOSPORIN [Concomitant]

REACTIONS (3)
  - PERITONEAL DIALYSIS COMPLICATION [None]
  - PERITONITIS BACTERIAL [None]
  - PYREXIA [None]
